FAERS Safety Report 5525384-2 (Version None)
Quarter: 2007Q4

REPORT INFORMATION
  Report Type: 
  Country: None (occurrence: None)
  Receive Date: 20071126
  Receipt Date: 20070620
  Transmission Date: 20080405
  Serious: Yes (Other)
  Sender: FDA-Public Use
  Company Number: US-ASTRAZENECA-2007UW02307

PATIENT
  Age: 589 Month
  Sex: Male
  Weight: 90.9 kg

DRUGS (2)
  1. SEROQUEL [Suspect]
     Indication: SCHIZOPHRENIA, PARANOID TYPE
     Route: 048
     Dates: start: 20020117, end: 20050101
  2. LITHIUM CARBONATE [Concomitant]
     Dates: start: 20001017, end: 20010407

REACTIONS (3)
  - HYPERTENSION [None]
  - RENAL FAILURE [None]
  - TYPE 2 DIABETES MELLITUS [None]
